FAERS Safety Report 7688436-7 (Version None)
Quarter: 2011Q3

REPORT INFORMATION
  Report Type: 
  Country: None (occurrence: None)
  Receive Date: 20110817
  Receipt Date: 20110808
  Transmission Date: 20111222
  Serious: Yes (Hospitalization)
  Sender: FDA-Public Use
  Company Number: GB-ROCHE-795326

PATIENT
  Sex: Female
  Weight: 92.9 kg

DRUGS (14)
  1. SODIUM BICARBONATE [Concomitant]
     Route: 048
     Dates: start: 20061201
  2. ONE-ALPHA [Concomitant]
     Dosage: DRUG: 1-ALPHACALCIDOL. 0.5 UG ON ALTERNATE DAYS, 0.25MCG ON DAYS BETWEEN
     Route: 065
     Dates: start: 20061201
  3. ATORVASTATIN [Concomitant]
     Route: 048
     Dates: start: 20040930
  4. CARVEDILOL [Concomitant]
     Dates: start: 20040930
  5. GLICLAZIDE [Concomitant]
     Dates: start: 20040930
  6. ASPIRIN [Concomitant]
     Dates: start: 20090930
  7. IRBESARTAN [Concomitant]
     Dates: start: 20040930
  8. XALATAN [Concomitant]
     Dosage: TDD: 1
     Dates: start: 20100707
  9. PERINDOPRIL [Concomitant]
     Dates: start: 20100311
  10. DOXAZOSIN MESYLATE [Concomitant]
     Dates: start: 20110622
  11. CYCLOPHOSPHAMIDE [Concomitant]
  12. MOVIPREP [Concomitant]
     Dosage: TDD: 1
     Dates: start: 20101222
  13. METHOXY POLYETHYLENE GLYCOL-EPOETIN BETA [Suspect]
     Dosage: DOSE FORM: PFS, LAST DOSE PRIOR TO SAE: 08 JULY 2011
     Route: 058
     Dates: start: 20091126
  14. FUROSEMIDE [Concomitant]
     Route: 048
     Dates: start: 20040930

REACTIONS (1)
  - VIITH NERVE PARALYSIS [None]
